FAERS Safety Report 23528383 (Version 6)
Quarter: 2024Q3

REPORT INFORMATION
  Report Type: Report from Study
  Country: IN (occurrence: IN)
  Receive Date: 20240215
  Receipt Date: 20240725
  Transmission Date: 20241017
  Serious: Yes (Other)
  Sender: INCYTE
  Company Number: IN-002147023-NVSC2024IN031074

PATIENT

DRUGS (1)
  1. RUXOLITINIB [Suspect]
     Active Substance: RUXOLITINIB
     Indication: Myelofibrosis
     Dosage: 10 MG, QD
     Route: 048
     Dates: start: 20230909

REACTIONS (11)
  - Mean cell volume abnormal [Unknown]
  - Basophil count abnormal [Unknown]
  - Monocyte count abnormal [Unknown]
  - Mean cell haemoglobin concentration abnormal [Unknown]
  - Neutrophil count abnormal [Unknown]
  - Haematocrit abnormal [Unknown]
  - Red blood cell abnormality [Unknown]
  - White blood cell count abnormal [Unknown]
  - Inappropriate schedule of product administration [Unknown]
  - Lymphocyte count abnormal [Unknown]
  - Red cell distribution width abnormal [Unknown]
